FAERS Safety Report 7444944-5 (Version None)
Quarter: 2011Q2

REPORT INFORMATION
  Report Type: 
  Country: None (occurrence: None)
  Receive Date: 20110429
  Receipt Date: 20110418
  Transmission Date: 20111010
  Serious: Yes (Hospitalization, Other)
  Sender: FDA-Public Use
  Company Number: PHHY2010JP43133

PATIENT
  Sex: Male

DRUGS (9)
  1. NORVASC [Concomitant]
     Indication: HYPERTENSION
     Dosage: 5 MG
     Route: 048
     Dates: start: 20081129, end: 20100313
  2. MOBIC [Concomitant]
     Dosage: 5 MG
     Route: 048
  3. ALLOPURINOL [Concomitant]
     Indication: HYPERURICAEMIA
     Dosage: 50 MG
     Route: 048
     Dates: start: 20090212, end: 20090303
  4. MOBIC [Concomitant]
     Indication: CANCER PAIN
     Dosage: 5 MG
     Route: 048
     Dates: start: 20090204, end: 20090313
  5. GASTER D [Concomitant]
     Indication: REFLUX OESOPHAGITIS
     Dosage: 20 MG
     Route: 048
     Dates: start: 20090130, end: 20090303
  6. GASTER [Concomitant]
     Indication: REFLUX OESOPHAGITIS
     Dosage: 10 MG
     Route: 048
     Dates: start: 20090315, end: 20100313
  7. ZOMETA [Suspect]
     Indication: HYPERCALCAEMIA OF MALIGNANCY
     Dosage: 4 MG,
     Route: 041
     Dates: start: 20090217
  8. ETHINYL ESTRADIOL [Concomitant]
     Indication: PROSTATE CANCER
     Dosage: 1.5 MG
     Route: 048
     Dates: start: 20090204, end: 20090303
  9. BUFFERIN [Concomitant]
     Indication: ANTICOAGULANT THERAPY
     Dosage: 81 MG
     Route: 048
     Dates: start: 20090204, end: 20090303

REACTIONS (5)
  - RENAL FAILURE ACUTE [None]
  - DECREASED APPETITE [None]
  - ASPARTATE AMINOTRANSFERASE INCREASED [None]
  - ALANINE AMINOTRANSFERASE INCREASED [None]
  - BLOOD ALKALINE PHOSPHATASE INCREASED [None]
